FAERS Safety Report 5072869-1 (Version None)
Quarter: 2006Q3

REPORT INFORMATION
  Report Type: 
  Country: None (occurrence: None)
  Receive Date: 20060802
  Receipt Date: 20060509
  Transmission Date: 20061208
  Serious: Yes (Other)
  Sender: FDA-Public Use
  Company Number: OMPQ-NO-0605S-0273

PATIENT
  Age: 62 Year
  Sex: Female

DRUGS (13)
  1. OMNIPAQUE 240 [Suspect]
     Indication: ABDOMINAL PAIN LOWER
     Dosage: 100 ML (SINGLE DOSE) I.V.
     Route: 042
     Dates: start: 20060425, end: 20060425
  2. OMNIPAQUE 240 [Suspect]
     Indication: CONSTIPATION
     Dosage: 100 ML (SINGLE DOSE) I.V.
     Route: 042
     Dates: start: 20060425, end: 20060425
  3. ETIZOLAM                (DEPAS) [Concomitant]
  4. LOXOPROFEN SODIUM              (LOXONIN) [Concomitant]
  5. FAMOTIDINE                (GASTER D) [Concomitant]
  6. LORMETAZEPAM       (EVAMYL) [Concomitant]
  7. QUAZEPAM                 (DORAL) [Concomitant]
  8. ALOSENN (ACHILLEA MILLEFOLIUM, SENNA ALEXANDRINE LEAF + FRUIT, ) [Concomitant]
  9. BETAHISTINE HYDROCHLORIDE (MERISLON) [Concomitant]
  10. PARACETAML (CALONAL) [Concomitant]
  11. FLUNITRAZEPAM (SILECE) [Concomitant]
  12. MAGNESIUM OXIDE (MAGNESIUM OXIDE) [Concomitant]
  13. DISTIGMINE BROMIDE (UBRETID) [Concomitant]

REACTIONS (11)
  - ANAPHYLACTIC SHOCK [None]
  - BLOOD PRESSURE INCREASED [None]
  - CONVERSION DISORDER [None]
  - DISEASE RECURRENCE [None]
  - DIZZINESS [None]
  - LOSS OF CONSCIOUSNESS [None]
  - MUSCULAR WEAKNESS [None]
  - NAUSEA [None]
  - OXYGEN SATURATION ABNORMAL [None]
  - TREMOR [None]
  - VERTIGO [None]
